FAERS Safety Report 8468149-4 (Version None)
Quarter: 2012Q2

REPORT INFORMATION
  Report Type: 
  Country: None (occurrence: None)
  Receive Date: 20120626
  Receipt Date: 20120601
  Transmission Date: 20120825
  Serious: Yes (Other)
  Sender: FDA-Public Use
  Company Number: US-BAYER-2012-052126

PATIENT
  Age: 23 Year
  Sex: Female

DRUGS (2)
  1. DIFFERIN [Suspect]
     Indication: ACNE
     Dosage: 0,3%/ FREQUENCY: EVERY OTHER NIGHT
     Route: 061
     Dates: start: 20120319, end: 20120522
  2. FINACEA [Suspect]
     Indication: ROSACEA
     Dosage: SHE USED ON HER FACE EVERY MORNING
     Route: 061
     Dates: start: 20120519, end: 20120522

REACTIONS (7)
  - PAIN OF SKIN [None]
  - BLISTER [None]
  - ERYTHEMA [None]
  - SKIN EXFOLIATION [None]
  - HYPERSENSITIVITY [None]
  - FACIAL PAIN [None]
  - BURNING SENSATION [None]
